FAERS Safety Report 8068715-4 (Version None)
Quarter: 2012Q1

REPORT INFORMATION
  Report Type: 
  Country: None (occurrence: None)
  Receive Date: 20120124
  Receipt Date: 20111121
  Transmission Date: 20120608
  Serious: No
  Sender: FDA-Public Use
  Company Number: US-AMGEN-USASP2011061680

PATIENT
  Sex: Female

DRUGS (8)
  1. VERAPAMIL [Concomitant]
  2. PROLIA [Suspect]
     Indication: OSTEOPOROSIS POSTMENOPAUSAL
     Dosage: UNK
     Dates: start: 20110101
  3. LISINOPRIL [Concomitant]
  4. ALBUTEROL [Concomitant]
  5. METFORMIN HCL [Concomitant]
  6. LIPITOR [Concomitant]
  7. CIMETIDINE [Concomitant]
  8. INSULIN [Concomitant]

REACTIONS (5)
  - GASTROOESOPHAGEAL REFLUX DISEASE [None]
  - DIZZINESS [None]
  - INSOMNIA [None]
  - BLOOD PRESSURE ABNORMAL [None]
  - DYSPNOEA [None]
